FAERS Safety Report 6233124-7 (Version None)
Quarter: 2009Q2

REPORT INFORMATION
  Report Type: 
  Country: None (occurrence: None)
  Receive Date: 20090616
  Receipt Date: 20090616
  Transmission Date: 20091009
  Serious: Yes (Hospitalization)
  Sender: FDA-Public Use
  Company Number: None

PATIENT
  Sex: Female

DRUGS (14)
  1. CISPLATIN [Suspect]
     Dosage: 25MG/M2, ONCE WEEKLY, IV
     Route: 042
     Dates: start: 20090423, end: 20090521
  2. RAD001 [Suspect]
     Indication: BREAST CANCER METASTATIC
     Dosage: 30MG, ONCE WEEKLY, IV
     Route: 042
     Dates: start: 20090423, end: 20090521
  3. PACLITAXEL [Suspect]
     Dosage: 80MG/M2, ONCE WEEKLY, IV
     Route: 042
  4. NORVASC [Concomitant]
  5. LASIX [Concomitant]
  6. HYDROCODONE BITARTRATE [Concomitant]
  7. ATIVAN [Concomitant]
  8. PRILOSEC [Concomitant]
  9. COMPAZINE [Concomitant]
  10. LEVAQUIN [Concomitant]
  11. PREDNISONE [Concomitant]
  12. ONDANSETRON [Concomitant]
  13. PHENAZOPYRIDINE HCL TAB [Concomitant]
  14. DIOVAN [Concomitant]

REACTIONS (1)
  - HYPONATRAEMIA [None]
